APPROVED DRUG PRODUCT: TASIGNA
Active Ingredient: NILOTINIB HYDROCHLORIDE
Strength: EQ 150MG BASE
Dosage Form/Route: CAPSULE;ORAL
Application: N022068 | Product #002 | TE Code: AB
Applicant: NOVARTIS PHARMACEUTICALS CORP
Approved: Jun 17, 2010 | RLD: Yes | RS: No | Type: RX

PATENTS:
Patent 8389537 | Expires: Jul 18, 2026
Patent 8415363 | Expires: Jul 18, 2026
Patent 9061029 | Expires: Apr 7, 2032
Patent 9061029 | Expires: Apr 7, 2032
Patent 8415363 | Expires: Jul 18, 2026
Patent 8501760 | Expires: Jul 18, 2026
Patent 8293756 | Expires: Sep 25, 2027
Patent 8163904 | Expires: Aug 23, 2028
Patent 8163904*PED | Expires: Feb 23, 2029
Patent 8389537*PED | Expires: Jan 18, 2027
Patent 8415363*PED | Expires: Jan 18, 2027
Patent 8501760*PED | Expires: Jan 18, 2027
Patent 8293756*PED | Expires: Mar 25, 2028
Patent 9061029*PED | Expires: Oct 7, 2032

EXCLUSIVITY:
Code: PED | Date: Mar 23, 2029
Code: ODE-380 | Date: Sep 23, 2028